FAERS Safety Report 10728355 (Version 1)
Quarter: 2015Q1

REPORT INFORMATION
  Report Type: Spontaneous
  Country: US (occurrence: US)
  Receive Date: 20150121
  Receipt Date: 20150121
  Transmission Date: 20150721
  Serious: No
  Sender: FDA-Public Use
  Company Number: US-ASTRAZENECA-2014SE92793

PATIENT
  Age: 72 Year
  Sex: Male
  Weight: 136.1 kg

DRUGS (1)
  1. SYMBICORT [Suspect]
     Active Substance: BUDESONIDE\FORMOTEROL FUMARATE DIHYDRATE
     Indication: BRONCHITIS
     Dosage: 160/4.5 MCG, 2 PUFFS BID
     Route: 055
     Dates: start: 20141111

REACTIONS (5)
  - Arthralgia [Unknown]
  - General physical health deterioration [Unknown]
  - Fatigue [Unknown]
  - Malaise [None]
  - Intentional product misuse [Unknown]
